FAERS Safety Report 14539973 (Version 1)
Quarter: 2018Q1

REPORT INFORMATION
  Report Type: Report from Study
  Country: US (occurrence: US)
  Receive Date: 20180216
  Receipt Date: 20180216
  Transmission Date: 20180509
  Serious: Yes (Hospitalization, Other)
  Sender: FDA-Public Use
  Company Number: US-GILEAD-2018-0319627

PATIENT
  Age: 57 Year
  Sex: Male

DRUGS (4)
  1. ADEMPAS [Concomitant]
     Active Substance: RIOCIGUAT
  2. AMBRISENTAN [Suspect]
     Active Substance: AMBRISENTAN
     Indication: PRODUCT USED FOR UNKNOWN INDICATION
     Dosage: 10 MG, QD
     Route: 065
     Dates: start: 20180202
  3. ORENITRAM [Concomitant]
     Active Substance: TREPROSTINIL
  4. XARELTO [Concomitant]
     Active Substance: RIVAROXABAN

REACTIONS (7)
  - Nasopharyngitis [Unknown]
  - Unevaluable event [Unknown]
  - Cardiac failure congestive [Unknown]
  - Respiratory failure [Unknown]
  - Viral infection [Unknown]
  - Hypoxia [Unknown]
  - Dyspnoea [Unknown]
